FAERS Safety Report 23013308 (Version 2)
Quarter: 2023Q4

REPORT INFORMATION
  Report Type: Spontaneous
  Country: GB (occurrence: GB)
  Receive Date: 20230930
  Receipt Date: 20231104
  Transmission Date: 20240109
  Serious: Yes (Life-Threatening)
  Sender: FDA-Public Use
  Company Number: GB-MHRA-MED-202309211903228690-KBPYS

PATIENT
  Age: 67 Year
  Sex: Male
  Weight: 89 kg

DRUGS (2)
  1. PRAMIPEXOLE [Suspect]
     Active Substance: PRAMIPEXOLE
     Indication: Adverse drug reaction
     Dosage: 176 MICROGRAM DAILY; AT NIGHT, UNIT DOSE: 176MCG
     Route: 065
     Dates: end: 20230905
  2. PRAMIPEXOLE [Suspect]
     Active Substance: PRAMIPEXOLE
     Indication: Restless legs syndrome

REACTIONS (3)
  - Gambling disorder [Recovering/Resolving]
  - Suicide attempt [Recovered/Resolved]
  - Medication error [Unknown]

NARRATIVE: CASE EVENT DATE: 20190101
